FAERS Safety Report 4342586-1 (Version None)
Quarter: 2004Q1

REPORT INFORMATION
  Report Type: 
  Country: None (occurrence: None)
  Receive Date: 20040213
  Receipt Date: 20031210
  Transmission Date: 20041129
  Serious: Yes (Other)
  Sender: FDA-Public Use
  Company Number: 354033

PATIENT
  Age: 45 Year
  Sex: Female

DRUGS (2)
  1. PEGASYS [Suspect]
     Dosage: SUBCUTANEOUS
     Route: 058
     Dates: start: 20030915
  2. COPEGUS [Suspect]
     Dosage: ORAL
     Route: 048
     Dates: start: 20030915

REACTIONS (6)
  - HAEMOGLOBIN DECREASED [None]
  - MOUTH ULCERATION [None]
  - NEUTROPHIL COUNT ABNORMAL [None]
  - PRURITUS [None]
  - RASH [None]
  - WHITE BLOOD CELL COUNT DECREASED [None]
